FAERS Safety Report 18270373 (Version 1)
Quarter: 2020Q3

REPORT INFORMATION
  Report Type: Spontaneous
  Country: FR (occurrence: FR)
  Receive Date: 20200916
  Receipt Date: 20200916
  Transmission Date: 20201103
  Serious: Yes (Hospitalization)
  Sender: FDA-Public Use
  Company Number: FR-TEVA-2020-FR-1826809

PATIENT
  Age: 73 Year
  Sex: Female
  Weight: 93.4 kg

DRUGS (7)
  1. BISOPROLOL (FUMARATE ACIDE DE) [Suspect]
     Active Substance: BISOPROLOL FUMARATE
     Indication: ATRIAL FIBRILLATION
     Dosage: 1.25 MG
     Route: 048
     Dates: end: 20200729
  2. FUROSEMIDE. [Concomitant]
     Active Substance: FUROSEMIDE
     Dosage: 80MG
     Route: 048
  3. AMIODARONE [Suspect]
     Active Substance: AMIODARONE
     Indication: ATRIAL FIBRILLATION
     Dosage: 200 MG
     Route: 048
     Dates: end: 20200729
  4. ELIQUIS [Suspect]
     Active Substance: APIXABAN
     Indication: ATRIAL FIBRILLATION
     Dosage: 5MG
     Route: 048
     Dates: end: 20200729
  5. LECTIL 16 MG, COMPRIME SECABLE [Concomitant]
     Dosage: 48MG
     Route: 048
  6. TRIMETAZIDINE (DICHLORHYDRATE DE) [Concomitant]
     Active Substance: TRIMETAZIDINE
     Dosage: 70 MG
     Route: 048
  7. DIFFU K, GELULE [Concomitant]
     Active Substance: POTASSIUM CHLORIDE
     Dosage: 1800MG
     Route: 048

REACTIONS (1)
  - Purpura [Recovered/Resolved]

NARRATIVE: CASE EVENT DATE: 20200715
